FAERS Safety Report 10199640 (Version 1)
Quarter: 2014Q2

REPORT INFORMATION
  Report Type: Spontaneous
  Country: US (occurrence: None)
  Receive Date: 20140523
  Receipt Date: 20140523
  Transmission Date: 20141212
  Serious: Yes (Other)
  Sender: FDA-Public Use
  Company Number: None

PATIENT
  Age: 34 Year
  Sex: Female
  Weight: 55.34 kg

DRUGS (2)
  1. TRAMADOL [Suspect]
     Indication: HEADACHE
     Dosage: 1 OR 2 PILLS THREE TIMES DAILY
     Route: 048
     Dates: start: 20120701, end: 20140519
  2. TRAMADOL [Suspect]
     Indication: MUSCLE SPASMS
     Dosage: 1 OR 2 PILLS THREE TIMES DAILY
     Route: 048
     Dates: start: 20120701, end: 20140519

REACTIONS (10)
  - Impaired driving ability [None]
  - Delusion [None]
  - Nausea [None]
  - Vomiting [None]
  - Anxiety [None]
  - Somnolence [None]
  - Tremor [None]
  - Confusional state [None]
  - Headache [None]
  - Feeling abnormal [None]
